FAERS Safety Report 8377861-7 (Version None)
Quarter: 2012Q2

REPORT INFORMATION
  Report Type: 
  Country: None (occurrence: None)
  Receive Date: 20120522
  Receipt Date: 20120301
  Transmission Date: 20120825
  Serious: Yes (Hospitalization)
  Sender: FDA-Public Use
  Company Number: DE-MERCK-1203USA00398

PATIENT
  Age: 48 Year
  Sex: Female

DRUGS (1)
  1. TAFLUPROST [Suspect]
     Indication: GLAUCOMA
     Dosage: LEFT EYE
     Route: 047
     Dates: start: 20101028, end: 20110810

REACTIONS (3)
  - PANIC ATTACK [None]
  - SPEECH DISORDER [None]
  - MOTOR DYSFUNCTION [None]
